FAERS Safety Report 25044803 (Version 3)
Quarter: 2025Q2

REPORT INFORMATION
  Report Type: Report from Study
  Country: US (occurrence: US)
  Receive Date: 20250306
  Receipt Date: 20250426
  Transmission Date: 20250716
  Serious: Yes (Other)
  Sender: UNITED THERAPEUTICS
  Company Number: US-UNITED THERAPEUTICS-UNT-2025-006989

PATIENT
  Age: 78 Year
  Sex: Female
  Weight: 71.202 kg

DRUGS (11)
  1. TREPROSTINIL SODIUM [Suspect]
     Active Substance: TREPROSTINIL SODIUM
     Indication: Pulmonary arterial hypertension
     Dosage: 18 ?G, QID
     Dates: start: 202502
  2. TREPROSTINIL SODIUM [Suspect]
     Active Substance: TREPROSTINIL SODIUM
  3. TREPROSTINIL SODIUM [Suspect]
     Active Substance: TREPROSTINIL SODIUM
  4. ELIQUIS [Concomitant]
     Active Substance: APIXABAN
     Indication: Product used for unknown indication
  5. DILTIAZEM [Concomitant]
     Active Substance: DILTIAZEM
     Indication: Product used for unknown indication
  6. VITAMINS [Concomitant]
     Active Substance: VITAMINS
     Indication: Product used for unknown indication
  7. SPIRONOLACTONE [Concomitant]
     Active Substance: SPIRONOLACTONE
     Indication: Product used for unknown indication
  8. OXYGEN [Concomitant]
     Active Substance: OXYGEN
     Indication: Oxygen saturation decreased
  9. OXYGEN [Concomitant]
     Active Substance: OXYGEN
  10. OXYGEN [Concomitant]
     Active Substance: OXYGEN
  11. FLONASE [Concomitant]
     Active Substance: FLUTICASONE PROPIONATE
     Indication: Seasonal allergy

REACTIONS (9)
  - Oxygen saturation decreased [Unknown]
  - Pulmonary thrombosis [Unknown]
  - Cough [Unknown]
  - Post-tussive vomiting [Unknown]
  - Dyspnoea [Unknown]
  - Asthenia [Unknown]
  - Seasonal allergy [Unknown]
  - COVID-19 [Unknown]
  - Hypotension [Unknown]

NARRATIVE: CASE EVENT DATE: 20250201
